FAERS Safety Report 21167057 (Version 1)
Quarter: 2022Q3

REPORT INFORMATION
  Report Type: Spontaneous
  Country: CN (occurrence: CN)
  Receive Date: 20220803
  Receipt Date: 20220803
  Transmission Date: 20221027
  Serious: Yes (Other)
  Sender: FDA-Public Use
  Company Number: CN-PFIZER INC-PV202200034733

PATIENT
  Age: 69 Year
  Sex: Female

DRUGS (2)
  1. MEDROL [Suspect]
     Active Substance: METHYLPREDNISOLONE
     Indication: Herpes zoster
     Dosage: 32.0 MG, 1X/DAY
     Route: 048
     Dates: start: 20220708, end: 20220709
  2. MEDROL [Suspect]
     Active Substance: METHYLPREDNISOLONE
     Indication: Radiculopathy

REACTIONS (2)
  - Dizziness [Recovered/Resolved]
  - Abdominal discomfort [Recovered/Resolved]

NARRATIVE: CASE EVENT DATE: 20220709
